FAERS Safety Report 9867437 (Version 1)
Quarter: 2014Q1

REPORT INFORMATION
  Report Type: Report from Study
  Country: LB (occurrence: LB)
  Receive Date: 20140204
  Receipt Date: 20140204
  Transmission Date: 20141002
  Serious: Yes (Death)
  Sender: FDA-Public Use
  Company Number: LB-SA-2014SA011079

PATIENT
  Age: 84 Year
  Sex: Male

DRUGS (8)
  1. LANTUS SOLOSTAR [Suspect]
     Indication: DIABETES MELLITUS
     Dosage: DOSE: 28-30 U
     Route: 058
  2. METFORMIN HYDROCHLORIDE [Concomitant]
     Indication: DIABETES MELLITUS
     Route: 048
  3. ONGLYZA [Concomitant]
     Indication: DIABETES MELLITUS
     Route: 048
  4. GLYBURIDE [Concomitant]
     Route: 048
  5. DIAMICRON [Concomitant]
     Route: 048
  6. ASPICOT [Concomitant]
     Route: 048
  7. BISOPROLOL [Concomitant]
     Route: 048
  8. SOLOSTAR [Concomitant]
     Route: 058

REACTIONS (1)
  - Cerebral artery embolism [Fatal]
